FAERS Safety Report 17140755 (Version 2)
Quarter: 2020Q2

REPORT INFORMATION
  Report Type: Spontaneous
  Country: US (occurrence: US)
  Receive Date: 20191211
  Receipt Date: 20200414
  Transmission Date: 20200713
  Serious: Yes (Other)
  Sender: FDA-Public Use
  Company Number: US-ASTRAZENECA-2019SF76099

PATIENT
  Sex: Male

DRUGS (8)
  1. SYNAGIS [Suspect]
     Active Substance: PALIVIZUMAB
     Indication: PREMATURE BABY
     Route: 030
  2. DOCUSATE [Concomitant]
     Active Substance: DOCUSATE
  3. SYNAGIS [Suspect]
     Active Substance: PALIVIZUMAB
     Indication: PREMATURE BABY
     Route: 030
  4. SYNAGIS [Suspect]
     Active Substance: PALIVIZUMAB
     Indication: PREMATURE BABY
     Route: 030
  5. CAFFIENE [Concomitant]
  6. SYNAGIS [Suspect]
     Active Substance: PALIVIZUMAB
     Indication: CHRONIC RESPIRATORY DISEASE
     Route: 030
  7. SYNAGIS [Suspect]
     Active Substance: PALIVIZUMAB
     Indication: PREMATURE BABY
     Route: 030
  8. SYNAGIS [Suspect]
     Active Substance: PALIVIZUMAB
     Indication: CHRONIC RESPIRATORY DISEASE
     Route: 030

REACTIONS (1)
  - Microcephaly [Unknown]
